FAERS Safety Report 4927384-X (Version None)
Quarter: 2006Q1

REPORT INFORMATION
  Report Type: 
  Country: None (occurrence: None)
  Receive Date: 20060228
  Receipt Date: 20051028
  Transmission Date: 20060701
  Serious: No
  Sender: FDA-Public Use
  Company Number: US-GLAXOSMITHKLINE-A0580106A

PATIENT
  Age: 35 Year
  Sex: Male

DRUGS (1)
  1. IMITREX [Suspect]
     Indication: MIGRAINE
     Dosage: .6MG AS REQUIRED
     Route: 058
     Dates: start: 20040605

REACTIONS (1)
  - DRUG INEFFECTIVE [None]
